FAERS Safety Report 4191724 (Version 17)
Quarter: 2013Q4

REPORT INFORMATION
  Report Type: Spontaneous
  Country: US (occurrence: US)
  Receive Date: 20040817
  Receipt Date: 20131010
  Transmission Date: 20140711
  Serious: Yes (Death, Hospitalization, Other)
  Sender: FDA-Public Use
  Company Number: PHEH2004US08275

PATIENT
  Age: 59 Year
  Sex: Female

DRUGS (43)
  1. ZOMETA [Suspect]
     Indication: OSTEOPOROSIS
     Dosage: 4 MG, QMO
     Route: 042
     Dates: start: 20020113, end: 20040619
  2. FOSAMAX [Suspect]
     Route: 048
  3. NAVELBINE [Concomitant]
  4. COUMADIN [Concomitant]
  5. FAMVIR [Concomitant]
     Indication: HERPES VIRUS INFECTION
     Dosage: 250 MG, QD
  6. NEXIUM [Concomitant]
     Dosage: 20 MG, QD
  7. EVISTA [Concomitant]
     Dosage: 60 MG, QD
  8. DETROL [Concomitant]
     Dosage: 4 MG, QD
  9. TRAZODONE [Concomitant]
     Dosage: 100 MG, PRN
  10. CLONAZEPAM [Concomitant]
     Indication: INSOMNIA
     Dosage: .5 MG, PRN
  11. CELEXA [Concomitant]
     Dosage: 40 MG, QD
  12. NITROFURANTOIN [Concomitant]
     Dosage: 50 MG, QD
  13. TAXANES [Concomitant]
  14. OXYFAST [Concomitant]
  15. CYTOXAN [Concomitant]
  16. TYLENOL W/CODEINE NO. 3 [Concomitant]
  17. VICODIN [Concomitant]
  18. PAXIL [Concomitant]
  19. PRILOSEC [Concomitant]
  20. HEXALEN [Concomitant]
     Indication: OVARIAN CANCER
     Dates: end: 20041110
  21. MIACALCIN [Concomitant]
  22. TOPOTECAN [Concomitant]
     Dates: end: 20031112
  23. CARBOPLATIN [Concomitant]
     Indication: OVARIAN CANCER
  24. TAXOL [Concomitant]
     Indication: OVARIAN CANCER
  25. DOXIL [Concomitant]
     Indication: OVARIAN CANCER
  26. GEMZAR [Concomitant]
     Indication: OVARIAN CANCER
     Dates: end: 2002
  27. COMPAZINE [Concomitant]
     Indication: NAUSEA
  28. VIOXX [Concomitant]
     Indication: MYALGIA
  29. ALPRAZOLAM [Concomitant]
  30. METHYLPHENIDATE [Concomitant]
     Dosage: 5 MG, TID
  31. LOVENOX [Concomitant]
     Dosage: 100 MG, QD
     Route: 058
  32. FERROUS SULFATE [Concomitant]
     Dosage: 324 MG, BID
  33. FLOVENT [Concomitant]
  34. CISPLATIN [Concomitant]
  35. CEFTIN [Concomitant]
  36. CITALOPRAM [Concomitant]
  37. VITAMIN K [Concomitant]
  38. POTASSIUM CHLORIDE [Concomitant]
  39. BIAXIN [Concomitant]
  40. TESSALON [Concomitant]
  41. COMBIVENT [Concomitant]
  42. KLONOPIN [Concomitant]
  43. OXYCONTIN [Concomitant]

REACTIONS (66)
  - Death [Fatal]
  - Osteonecrosis of jaw [Not Recovered/Not Resolved]
  - Toothache [Not Recovered/Not Resolved]
  - Swelling [Recovering/Resolving]
  - Sinus disorder [Not Recovered/Not Resolved]
  - Osteomyelitis [Unknown]
  - Bone scan abnormal [Unknown]
  - Injury [Unknown]
  - Pain [Unknown]
  - Anxiety [Unknown]
  - Tooth infection [Unknown]
  - Malignant neoplasm progression [Unknown]
  - Lymphadenopathy [Unknown]
  - Ovarian cancer metastatic [Unknown]
  - Liver disorder [Unknown]
  - Bile duct obstruction [Unknown]
  - Pleural effusion [Unknown]
  - Dyspnoea [Unknown]
  - Atelectasis [Unknown]
  - Diverticulum [Unknown]
  - Gastric polyps [Unknown]
  - Myocardial infarction [Unknown]
  - Sinus tachycardia [Unknown]
  - Metastases to liver [Unknown]
  - Metastases to thyroid [Unknown]
  - Gastrooesophageal reflux disease [Unknown]
  - Acquired oesophageal web [Unknown]
  - Portal vein occlusion [Unknown]
  - Cystitis [Unknown]
  - Haematuria [Unknown]
  - Hyperlipidaemia [Unknown]
  - Nausea [Unknown]
  - Back pain [Recovered/Resolved]
  - Anaemia [Unknown]
  - Abdominal distension [Unknown]
  - Urge incontinence [Unknown]
  - Hydronephrosis [Recovered/Resolved]
  - Hiatus hernia [Unknown]
  - Flank pain [Unknown]
  - Renal cyst [Unknown]
  - Diarrhoea [Unknown]
  - Osteoporosis [Unknown]
  - Thrombocytopenia [Unknown]
  - Incontinence [Unknown]
  - Myalgia [Unknown]
  - Arthralgia [Unknown]
  - Pyrexia [Unknown]
  - Asthenia [Unknown]
  - Fall [Unknown]
  - Contusion [Unknown]
  - Hepatic steatosis [Unknown]
  - Left ventricular hypertrophy [Unknown]
  - Left atrial dilatation [Unknown]
  - Mitral valve incompetence [Unknown]
  - Central venous pressure increased [Unknown]
  - Apnoea [Unknown]
  - Jaundice [Unknown]
  - Bedridden [Unknown]
  - Confusional state [Unknown]
  - Jaundice cholestatic [Unknown]
  - Bronchitis [Unknown]
  - Cough [Unknown]
  - Dyspnoea exertional [Unknown]
  - Cardiac failure congestive [Unknown]
  - Hyperglycaemia [Unknown]
  - Respiratory distress [Unknown]
